FAERS Safety Report 25790413 (Version 1)
Quarter: 2025Q3

REPORT INFORMATION
  Report Type: Spontaneous
  Country: EU (occurrence: EU)
  Receive Date: 20250911
  Receipt Date: 20250911
  Transmission Date: 20251020
  Serious: Yes (Hospitalization)
  Sender: RANBAXY
  Company Number: EU-SUN PHARMACEUTICAL INDUSTRIES INC-2025RR-526771

PATIENT
  Age: 94 Year
  Sex: Female
  Weight: 90 kg

DRUGS (3)
  1. AMIODARONE [Suspect]
     Active Substance: AMIODARONE
     Indication: Atrial fibrillation
     Dosage: 1-0-0
     Route: 048
     Dates: start: 20250219, end: 20250317
  2. GABAPENTIN [Suspect]
     Active Substance: GABAPENTIN
     Indication: Peripheral motor neuropathy
     Dosage: 300 MG 2-2-2
     Route: 048
     Dates: end: 20250314
  3. GABAPENTIN [Suspect]
     Active Substance: GABAPENTIN
     Dosage: 100 MG 2-2-2
     Route: 048
     Dates: start: 20250315

REACTIONS (1)
  - Action tremor [Recovered/Resolved]
